FAERS Safety Report 4510656-0 (Version None)
Quarter: 2004Q4

REPORT INFORMATION
  Report Type: 
  Country: None (occurrence: None)
  Receive Date: 20041122
  Receipt Date: 20041105
  Transmission Date: 20050328
  Serious: No
  Sender: FDA-Public Use
  Company Number: 9245

PATIENT
  Age: 43 Year
  Sex: Male

DRUGS (5)
  1. LEUCOVORIN [Suspect]
     Indication: ADENOCARCINOMA
     Dosage: 120MG FORTNIGHTLY, UNK
     Dates: start: 20030410
  2. IRINOTECAN HYDROCHLORIDE [Suspect]
     Indication: ADENOCARCINOMA
     Dosage: 360 MG FORTNIGHTLY
     Route: 065
     Dates: start: 20030410
  3. FLUOROURACIL [Suspect]
     Indication: ADENOCARCINOMA
     Dosage: 1000 MG FORTNIGHTLY, UNK
     Route: 065
     Dates: start: 20030410
  4. LANSOPRAZOLE [Concomitant]
  5. LOPERAMIDE HYDROCHLORIDE [Concomitant]

REACTIONS (3)
  - BLINDNESS [None]
  - CATARACT [None]
  - VISUAL DISTURBANCE [None]
